FAERS Safety Report 9857913 (Version 7)
Quarter: 2014Q4

REPORT INFORMATION
  Report Type: Spontaneous
  Country: CA (occurrence: CA)
  Receive Date: 20140131
  Receipt Date: 20141103
  Transmission Date: 20150529
  Serious: Yes (Hospitalization)
  Sender: FDA-Public Use
  Company Number: CA-AMGEN-CANSP2014006598

PATIENT
  Age: 62 Year
  Sex: Male

DRUGS (64)
  1. ENOXAPARIN SODIUM. [Concomitant]
     Active Substance: ENOXAPARIN SODIUM
     Dosage: 70 MG, 1 DAYS
     Dates: start: 20140116, end: 20140116
  2. PANTOPRAZOLE [Concomitant]
     Active Substance: PANTOPRAZOLE SODIUM
     Dosage: 40 MG, UNK
     Dates: start: 20121204
  3. ACYCLOVIR                          /00587301/ [Concomitant]
     Active Substance: ACYCLOVIR
     Dosage: 400 MG, UNK
     Dates: start: 20131017
  4. HYDROMORPHONE [Concomitant]
     Active Substance: HYDROMORPHONE
     Dosage: 18 MG (9 MG, 2 IN 1 D)
     Route: 048
     Dates: start: 20131129, end: 20140108
  5. LACTULOSE. [Concomitant]
     Active Substance: LACTULOSE
     Dosage: 30 ML, UNK
     Route: 048
     Dates: start: 20131129, end: 20131205
  6. LIDOCAINE. [Concomitant]
     Active Substance: LIDOCAINE
     Dosage: 100 MG, AS NEEDED
     Route: 002
     Dates: start: 20140108
  7. DOXORUBICIN [Concomitant]
     Active Substance: DOXORUBICIN
     Indication: DIFFUSE LARGE B-CELL LYMPHOMA
     Dosage: UNK
     Route: 065
  8. ASPIRIN. [Concomitant]
     Active Substance: ASPIRIN
     Dosage: 81 MG, UNK
     Dates: start: 20131204
  9. ACYCLOVIR                          /00587301/ [Concomitant]
     Active Substance: ACYCLOVIR
     Dosage: 800 MG, UNK
     Dates: start: 20140115, end: 20140116
  10. ZOFRAN                             /00955301/ [Concomitant]
     Active Substance: ONDANSETRON HYDROCHLORIDE
     Dosage: 8 MG, 1 IN 1 D
     Route: 048
     Dates: start: 20131218
  11. METHYLPREDNISOLONE. [Concomitant]
     Active Substance: METHYLPREDNISOLONE
     Dosage: 80 MG, 1 IN 1 D
     Route: 042
     Dates: start: 20131218
  12. DEXAMETHASONE. [Concomitant]
     Active Substance: DEXAMETHASONE
     Dosage: 40 MG, 1 IN 1 D
     Route: 048
     Dates: start: 20140617
  13. NITROGLYCERINE [Concomitant]
     Active Substance: NITROGLYCERIN
     Dosage: 0.4 MG, AS NEEDED
     Route: 060
  14. ACYCLOVIR                          /00587301/ [Concomitant]
     Active Substance: ACYCLOVIR
     Dosage: 2100 MG (700 MG, 3 IN 1 D)
     Route: 042
     Dates: start: 20131228, end: 20140104
  15. LOVENOX [Concomitant]
     Active Substance: ENOXAPARIN SODIUM
     Dosage: 40 MG, UNK
     Route: 058
     Dates: start: 20131202, end: 20131212
  16. LOVENOX [Concomitant]
     Active Substance: ENOXAPARIN SODIUM
     Dosage: 40 MG, UNK
     Route: 058
     Dates: start: 20140117, end: 20140117
  17. MYCOSTATIN [Concomitant]
     Active Substance: NYSTATIN
     Dosage: 100000.0 UNIT, AS NECESSARY
     Route: 002
     Dates: start: 20140108
  18. TYLENOL [Concomitant]
     Active Substance: ACETAMINOPHEN
     Dosage: 975 MG, ONCE DAILY
     Route: 048
     Dates: start: 20131218
  19. NEUPOGEN [Suspect]
     Active Substance: FILGRASTIM
     Dosage: 480 MG, UNK
     Route: 048
     Dates: start: 20140111
  20. NEULASTA [Concomitant]
     Active Substance: PEGFILGRASTIM
     Dosage: 6 MG, AS NEEDED
     Route: 058
     Dates: start: 20140131
  21. CYCLOPHOSPHAMIDE. [Concomitant]
     Active Substance: CYCLOPHOSPHAMIDE
     Indication: DIFFUSE LARGE B-CELL LYMPHOMA
     Dosage: UNK
     Route: 065
  22. PREDNISOLON [Concomitant]
     Active Substance: PREDNISOLONE
     Indication: DIFFUSE LARGE B-CELL LYMPHOMA
     Dosage: UNK
     Route: 065
  23. NITROGLYCERINE [Concomitant]
     Active Substance: NITROGLYCERIN
     Dosage: 0.4 MG SPRAY, 1 DAYS
     Route: 060
     Dates: start: 20140115, end: 20140115
  24. DOCUSATE SODIUM. [Concomitant]
     Active Substance: DOCUSATE SODIUM
     Dosage: 240 MG, AS NEEDED
     Route: 048
     Dates: start: 20140101
  25. DOCUSATE SODIUM. [Concomitant]
     Active Substance: DOCUSATE SODIUM
     Dosage: UNK UNK, AS NEEDED
     Route: 048
     Dates: start: 20140109
  26. GABAPENTIN. [Concomitant]
     Active Substance: GABAPENTIN
     Dosage: 1800 MG (600 MG, 3 IN 1 D)
     Dates: start: 20131123
  27. ASPIRIN. [Concomitant]
     Active Substance: ASPIRIN
     Dosage: 81 MG, 1 IN 1 D
     Route: 048
     Dates: start: 1998
  28. HYDROMORPHONE [Concomitant]
     Active Substance: HYDROMORPHONE
     Dosage: 4 MG, FOUR TIMES AS NEEDED
     Route: 048
     Dates: start: 20131122
  29. HYDROMORPHONE [Concomitant]
     Active Substance: HYDROMORPHONE
     Dosage: UNK, (1 IN 1 D)
     Route: 058
     Dates: start: 20140616
  30. TECTA [Concomitant]
     Active Substance: PANTOPRAZOLE MAGNESIUM
     Dosage: 40 MG, 1 IN 1 D
     Route: 048
     Dates: start: 20121204
  31. PREDNISONE. [Concomitant]
     Active Substance: PREDNISONE
     Dosage: 25 MG, 1 IN 1 D
     Route: 048
     Dates: start: 20131204, end: 20131216
  32. BENADRYL [Concomitant]
     Active Substance: DIPHENHYDRAMINE HYDROCHLORIDE
     Dosage: 50 MG, 1 IN 1 D
     Route: 042
     Dates: start: 20131218
  33. MAGNESIUM SULFATE. [Concomitant]
     Active Substance: MAGNESIUM SULFATE
     Dosage: UNK UNK, (1 IN 1 D)
     Route: 042
     Dates: start: 20140617
  34. RITUXIMAB [Concomitant]
     Active Substance: RITUXIMAB
     Indication: DIFFUSE LARGE B-CELL LYMPHOMA
     Dosage: 720 MG, 1 IN 21 D
     Route: 042
     Dates: start: 20131218
  35. DIPHENHYDRAMINE [Concomitant]
     Active Substance: DIPHENHYDRAMINE
     Dosage: 50 MG, 1 IN 1 D
     Route: 042
     Dates: start: 20140617
  36. ENOXAPARIN SODIUM. [Concomitant]
     Active Substance: ENOXAPARIN SODIUM
     Dosage: 40 MG, UNK
     Dates: start: 20140117
  37. GABAPENTIN. [Concomitant]
     Active Substance: GABAPENTIN
     Dosage: 1200 MG, UNK
     Dates: start: 20131122
  38. PROCHLORPERAZINE. [Concomitant]
     Active Substance: PROCHLORPERAZINE
     Dosage: 10 MG, Q6PRN
     Dates: start: 20131219
  39. ATIVAN [Concomitant]
     Active Substance: LORAZEPAM
     Dosage: 0.5 MG, AT NIGHT
     Route: 048
     Dates: start: 20131122
  40. ACETAMINOPHEN. [Concomitant]
     Active Substance: ACETAMINOPHEN
     Dosage: 975 MG, 1 IN 1 D
     Route: 048
     Dates: start: 20140617
  41. MANNITOL. [Concomitant]
     Active Substance: MANNITOL
     Dosage: 25 G, 1 IN 1 D
     Route: 042
     Dates: start: 20140617
  42. GABAPENTIN. [Concomitant]
     Active Substance: GABAPENTIN
     Dosage: 600 MG (200 MG,3 IN 1 D)
     Dates: start: 20131123
  43. PREDNISONE. [Concomitant]
     Active Substance: PREDNISONE
     Dosage: 100 MG, UNK
     Route: 048
     Dates: start: 20131219
  44. STEMETIL                           /00013301/ [Concomitant]
     Dosage: 10 MG, AS NEEDED
     Route: 048
     Dates: start: 20131219
  45. EFFEXOR [Concomitant]
     Active Substance: VENLAFAXINE HYDROCHLORIDE
     Dosage: 37.5 MG, 1 IN 1 D
     Route: 048
     Dates: start: 20140109
  46. GEMCITABINE [Concomitant]
     Active Substance: GEMCITABINE\GEMCITABINE HYDROCHLORIDE
     Dosage: 1890 MG, 1 IN 1 D
     Route: 042
     Dates: start: 20140617
  47. NEUPOGEN [Suspect]
     Active Substance: FILGRASTIM
     Indication: DIFFUSE LARGE B-CELL LYMPHOMA
     Dosage: 300 MG,1 IN 1 D
     Route: 058
     Dates: start: 20131228, end: 20140106
  48. ENOXAPARIN SODIUM. [Concomitant]
     Active Substance: ENOXAPARIN SODIUM
     Dosage: 90 MG, 1 DAYS
     Dates: start: 20140115, end: 20140115
  49. GABAPENTIN. [Concomitant]
     Active Substance: GABAPENTIN
     Dosage: 1200 MG, UNK
     Route: 048
     Dates: start: 20140115
  50. ESCITALOPRAM                       /01588502/ [Concomitant]
     Dosage: 10 MG, UNK
     Dates: start: 20140110
  51. HYDROMORPHONE [Concomitant]
     Active Substance: HYDROMORPHONE
     Dosage: 4 MG, Q4PRN
     Dates: start: 20131129
  52. SENOKOT [Concomitant]
     Active Substance: SENNOSIDES
     Dosage: 8.6 MG, AS NEEDED
     Route: 048
     Dates: start: 20131202
  53. LOVENOX [Concomitant]
     Active Substance: ENOXAPARIN SODIUM
     Dosage: 70 MG, UNK
     Route: 058
     Dates: start: 20140116, end: 20140116
  54. CRESTOR [Concomitant]
     Active Substance: ROSUVASTATIN CALCIUM
     Dosage: 20 MG, 1 IN 1 D
     Route: 048
     Dates: start: 20121204
  55. CRESTOR [Concomitant]
     Active Substance: ROSUVASTATIN CALCIUM
     Dosage: 10 MG, 1 IN 1 D
     Route: 048
     Dates: start: 20131229
  56. SODIUM BICARBONATE. [Concomitant]
     Active Substance: SODIUM BICARBONATE
     Dosage: 4.5 G, UNK
     Route: 002
     Dates: start: 20140108
  57. TYLENOL [Concomitant]
     Active Substance: ACETAMINOPHEN
     Dosage: 325 MG, UNK
     Route: 048
     Dates: start: 20140131
  58. VINCRISTINE [Concomitant]
     Active Substance: VINCRISTINE
     Indication: DIFFUSE LARGE B-CELL LYMPHOMA
     Dosage: UNK
     Route: 065
  59. FUROSEMIDE. [Concomitant]
     Active Substance: FUROSEMIDE
     Dosage: 40 MG, 1 IN 1 D
     Route: 048
     Dates: start: 20140617
  60. ACYCLOVIR                          /00587301/ [Concomitant]
     Active Substance: ACYCLOVIR
     Dosage: 400 MG, 2 IN 2 D
     Route: 048
     Dates: start: 20140105, end: 20140219
  61. RAMIPRIL. [Concomitant]
     Active Substance: RAMIPRIL
     Dosage: 5 MG, 1 IN 1 D
     Route: 048
     Dates: start: 20121204, end: 20140117
  62. ALLOPURINOL. [Concomitant]
     Active Substance: ALLOPURINOL
     Dosage: 300 MG, 1 IN 1 D
     Route: 048
     Dates: start: 20131217, end: 20140125
  63. XYLOCAINE                          /00033402/ [Concomitant]
     Dosage: 15 ML, UNK
     Dates: start: 20140115, end: 20140115
  64. POTASSIUM CHLORIDE. [Concomitant]
     Active Substance: POTASSIUM CHLORIDE
     Dosage: 30 MMOL, 1 IN 1 D
     Route: 042
     Dates: start: 20140617

REACTIONS (1)
  - Chest pain [Recovered/Resolved]

NARRATIVE: CASE EVENT DATE: 20140115
